FAERS Safety Report 18967327 (Version 1)
Quarter: 2021Q1

REPORT INFORMATION
  Report Type: Spontaneous
  Country: US (occurrence: US)
  Receive Date: 20210304
  Receipt Date: 20210304
  Transmission Date: 20210420
  Serious: Yes (Other)
  Sender: FDA-Public Use
  Company Number: US-BAYER-2021-083716

PATIENT
  Sex: Female

DRUGS (1)
  1. MIRENA [Suspect]
     Active Substance: LEVONORGESTREL
     Indication: CONTRACEPTION
     Dosage: 20  ?G PER DAY CONTINUOUSLY
     Route: 015
     Dates: start: 2017

REACTIONS (6)
  - Abdominal pain lower [Unknown]
  - Procedural pain [None]
  - Post procedural discomfort [None]
  - Complication of device removal [None]
  - Embedded device [Unknown]
  - Abdominal discomfort [Unknown]
